FAERS Safety Report 5041718-X (Version None)
Quarter: 2006Q2

REPORT INFORMATION
  Report Type: 
  Country: None (occurrence: None)
  Receive Date: 20060630
  Receipt Date: 20060622
  Transmission Date: 20061013
  Serious: Yes (Other)
  Sender: FDA-Public Use
  Company Number: 2006079584

PATIENT
  Sex: Female
  Weight: 65.7716 kg

DRUGS (4)
  1. GLUCOTROL [Suspect]
     Indication: DIABETES MELLITUS
     Dosage: 10 MG (10 MG, 1 IN 1 D)
  2. MOTRIN [Suspect]
     Indication: PAIN
     Dosage: 1600 MG (800 MG, 2 IN 1 D)
  3. STARLIX [Suspect]
     Indication: DIABETES MELLITUS
     Dosage: 360 MG (120 MG, 3 IN 1 D)
     Dates: start: 20050101, end: 20050101
  4. ACTONEL [Concomitant]

REACTIONS (9)
  - DIABETES MELLITUS [None]
  - DYSPNOEA [None]
  - FEELING HOT [None]
  - FEELING JITTERY [None]
  - FORMICATION [None]
  - HERPES ZOSTER [None]
  - HYPERHIDROSIS [None]
  - NERVOUSNESS [None]
  - STRESS [None]
